FAERS Safety Report 6413158-X (Version None)
Quarter: 2009Q4

REPORT INFORMATION
  Report Type: 
  Country: None (occurrence: None)
  Receive Date: 20091022
  Receipt Date: 20091022
  Transmission Date: 20100525
  Serious: Yes (Life-Threatening, Hospitalization)
  Sender: FDA-Public Use
  Company Number: None

PATIENT
  Age: 19 Year

DRUGS (1)
  1. ETONOGESTREL [Suspect]
     Dosage: 68 MG ONCE OTHER
     Route: 050
     Dates: start: 20080401

REACTIONS (5)
  - ANAEMIA [None]
  - HAEMORRHAGE [None]
  - LOSS OF CONSCIOUSNESS [None]
  - MUSCLE RIGIDITY [None]
  - TREMOR [None]
